FAERS Safety Report 12126523 (Version 3)
Quarter: 2016Q2

REPORT INFORMATION
  Report Type: Spontaneous
  Country: BR (occurrence: BR)
  Receive Date: 20160229
  Receipt Date: 20160405
  Transmission Date: 20160815
  Serious: Yes (Other)
  Sender: FDA-Public Use
  Company Number: BR-JNJFOC-20160225068

PATIENT
  Sex: Male
  Weight: 120 kg

DRUGS (8)
  1. CARBOLITIUM [Concomitant]
     Active Substance: LITHIUM CARBONATE
     Indication: PRODUCT USED FOR UNKNOWN INDICATION
     Route: 065
  2. HALDOL [Suspect]
     Active Substance: HALOPERIDOL
     Indication: THINKING ABNORMAL
     Route: 048
  3. MIDAZOLAM MALEATE [Concomitant]
     Active Substance: MIDAZOLAM MALEATE
     Indication: PRODUCT USED FOR UNKNOWN INDICATION
     Route: 065
  4. GEODON [Concomitant]
     Active Substance: ZIPRASIDONE HYDROCHLORIDE\ZIPRASIDONE MESYLATE
     Indication: PRODUCT USED FOR UNKNOWN INDICATION
     Route: 065
  5. RIVOTRIL [Concomitant]
     Active Substance: CLONAZEPAM
     Indication: PRODUCT USED FOR UNKNOWN INDICATION
     Route: 065
  6. HALDOL [Suspect]
     Active Substance: HALOPERIDOL
     Indication: BIPOLAR DISORDER
     Route: 048
  7. HALDOL [Suspect]
     Active Substance: HALOPERIDOL
     Indication: BIPOLAR DISORDER
     Route: 048
  8. HALDOL [Suspect]
     Active Substance: HALOPERIDOL
     Indication: THINKING ABNORMAL
     Route: 048

REACTIONS (3)
  - Incorrect dose administered [Unknown]
  - Chest pain [Unknown]
  - Back pain [Unknown]
